FAERS Safety Report 25008199 (Version 1)
Quarter: 2025Q1

REPORT INFORMATION
  Report Type: Spontaneous
  Country: US (occurrence: US)
  Receive Date: 20250225
  Receipt Date: 20250225
  Transmission Date: 20250408
  Serious: No
  Sender: XELLIA PHARMACEUTICALS
  Company Number: US-Axellia-005331

PATIENT

DRUGS (1)
  1. VANCOMYCIN [Suspect]
     Active Substance: VANCOMYCIN
     Indication: Product used for unknown indication

REACTIONS (3)
  - Flushing [Unknown]
  - Erythema [Unknown]
  - Pruritus [Unknown]
